FAERS Safety Report 7581310-6 (Version None)
Quarter: 2011Q2

REPORT INFORMATION
  Report Type: 
  Country: None (occurrence: None)
  Receive Date: 20110629
  Receipt Date: 20110617
  Transmission Date: 20111010
  Serious: Yes (Other)
  Sender: FDA-Public Use
  Company Number: GB-JNJFOC-20110608825

PATIENT
  Age: 25 Year
  Sex: Female
  Weight: 70 kg

DRUGS (6)
  1. LOPERAMIDE [Concomitant]
  2. INFLIXIMAB, RECOMBINANT [Suspect]
     Indication: CROHN'S DISEASE
     Route: 042
     Dates: start: 20100111
  3. ACETAMINOPHEN AND CODEINE PHOSPHATE [Concomitant]
  4. AMITRIPTYLINE [Concomitant]
  5. DIAZEPAM [Concomitant]
  6. IBUPROFEN [Concomitant]

REACTIONS (8)
  - TACHYCARDIA [None]
  - HEADACHE [None]
  - INFUSION RELATED REACTION [None]
  - NAUSEA [None]
  - RASH GENERALISED [None]
  - BODY TEMPERATURE INCREASED [None]
  - DIZZINESS [None]
  - FLUSHING [None]
